FAERS Safety Report 16857662 (Version 1)
Quarter: 2019Q3

REPORT INFORMATION
  Report Type: Spontaneous
  Country: GB (occurrence: GB)
  Receive Date: 20190926
  Receipt Date: 20190926
  Transmission Date: 20191005
  Serious: Yes (Hospitalization)
  Sender: FDA-Public Use
  Company Number: GB-INTERCEPT-PM2019001641

PATIENT
  Age: 59 Year
  Sex: Female

DRUGS (1)
  1. OBETICHOLIC ACID [Suspect]
     Active Substance: OBETICHOLIC ACID
     Indication: PRIMARY BILIARY CHOLANGITIS
     Dosage: 1 UNK, QD
     Route: 048

REACTIONS (2)
  - Cholangitis [Not Recovered/Not Resolved]
  - Drug ineffective [Not Recovered/Not Resolved]
